FAERS Safety Report 14918241 (Version 5)
Quarter: 2019Q3

REPORT INFORMATION
  Report Type: Report from Study
  Country: US (occurrence: US)
  Receive Date: 20180521
  Receipt Date: 20190910
  Transmission Date: 20191004
  Serious: Yes (Hospitalization)
  Sender: FDA-Public Use
  Company Number: US-ROCHE-2125690

PATIENT
  Age: 51 Year
  Sex: Male
  Weight: 104 kg

DRUGS (18)
  1. ENOXAPARIN [Concomitant]
     Active Substance: ENOXAPARIN
     Route: 030
     Dates: start: 20180501
  2. LOPERAMIDE [Concomitant]
     Active Substance: LOPERAMIDE
     Indication: DIARRHOEA
  3. PIROXICAM. [Concomitant]
     Active Substance: PIROXICAM
     Dosage: PRE-MED
     Route: 048
     Dates: start: 20180508, end: 20180508
  4. ONDANSETRON [Concomitant]
     Active Substance: ONDANSETRON
     Indication: NAUSEA
     Route: 048
     Dates: start: 20180418
  5. IMODIUM [Concomitant]
     Active Substance: LOPERAMIDE HYDROCHLORIDE
     Indication: DIARRHOEA
     Route: 048
     Dates: start: 20180418
  6. BENADRYL [Concomitant]
     Active Substance: DIPHENHYDRAMINE HYDROCHLORIDE
     Indication: HYPERSENSITIVITY
     Dosage: ALLERGY TO DYE CONTRAST
     Route: 048
     Dates: start: 20180418
  7. DEXAMETHASONE. [Concomitant]
     Active Substance: DEXAMETHASONE
     Dosage: INFLAMMATION PRE MED
     Route: 048
     Dates: start: 20180418
  8. PEGPH20 [Suspect]
     Active Substance: PEGVORHYALURONIDASE ALFA
     Indication: PANCREATIC CARCINOMA METASTATIC
     Dosage: DOSE AS PER PROTOCOL?DATE OF MOST RECENT DOSE PRIOR TO EVENT WAS 08/MAY/2018 (310 )
     Route: 042
     Dates: start: 20180501
  9. VITAMIN D3 [Concomitant]
     Active Substance: CHOLECALCIFEROL
  10. LORAZEPAM. [Concomitant]
     Active Substance: LORAZEPAM
     Indication: ANXIETY
     Route: 048
     Dates: start: 20180418
  11. DEXAMETHASONE. [Concomitant]
     Active Substance: DEXAMETHASONE
     Dosage: PRE-MED SCAN
     Route: 048
     Dates: start: 20180418
  12. ALEVE [Concomitant]
     Active Substance: NAPROXEN SODIUM
     Indication: MUSCULOSKELETAL PAIN
     Route: 065
     Dates: start: 20180508
  13. FAMOTIDINE. [Concomitant]
     Active Substance: FAMOTIDINE
     Indication: GASTROOESOPHAGEAL REFLUX DISEASE
     Route: 048
     Dates: start: 20180418
  14. CETIRIZINE [Concomitant]
     Active Substance: CETIRIZINE HYDROCHLORIDE
     Dosage: PRE-MED
     Route: 065
     Dates: start: 20180418
  15. OMPRAZOLE [Concomitant]
     Active Substance: OMEPRAZOLE
     Dosage: CHEMO PRE-MED
     Route: 048
     Dates: start: 20180501
  16. LISINOPRIL AND HYDROCHLOROTHIAZIDE [Concomitant]
     Active Substance: HYDROCHLOROTHIAZIDE\LISINOPRIL
     Indication: HYPERTENSION
     Route: 048
  17. ATEZOLIZUMAB. [Suspect]
     Active Substance: ATEZOLIZUMAB
     Indication: PANCREATIC CARCINOMA METASTATIC
     Dosage: DATE OF MOST RECENT DOSE OF STUDY DRUG ATEZOLIZUMAB PRIOR TO AE ONSET 01/MAY/2018
     Route: 042
     Dates: start: 20180501
  18. PIROXICAM. [Concomitant]
     Active Substance: PIROXICAM
     Dosage: PRE-MED
     Route: 048
     Dates: start: 20180501, end: 20180501

REACTIONS (1)
  - Febrile neutropenia [Recovered/Resolved]

NARRATIVE: CASE EVENT DATE: 20180514
